FAERS Safety Report 14635851 (Version 1)
Quarter: 2018Q1

REPORT INFORMATION
  Report Type: Spontaneous
  Country: GB (occurrence: GB)
  Receive Date: 20180314
  Receipt Date: 20180314
  Transmission Date: 20180509
  Serious: Yes (Disabling, Other)
  Sender: FDA-Public Use
  Company Number: GB-AUROBINDO-AUR-APL-2018-013860

PATIENT
  Age: 50 Year
  Sex: Male
  Weight: 122.46 kg

DRUGS (2)
  1. OMEPRAZOLE. [Concomitant]
     Active Substance: OMEPRAZOLE
     Indication: PRODUCT USED FOR UNKNOWN INDICATION
     Dosage: UNK
  2. NAPROXEN. [Suspect]
     Active Substance: NAPROXEN
     Indication: PERIARTHRITIS
     Dosage: UNK
     Route: 048
     Dates: start: 20160301, end: 20161101

REACTIONS (9)
  - Feeling abnormal [Unknown]
  - Depression [Unknown]
  - Colorectal cancer [Unknown]
  - Gastrointestinal pain [Unknown]
  - Fatigue [Unknown]
  - Coeliac disease [Unknown]
  - Steatorrhoea [Unknown]
  - Arthralgia [Unknown]
  - Abdominal distension [Unknown]

NARRATIVE: CASE EVENT DATE: 20160501
